FAERS Safety Report 5987276-4 (Version None)
Quarter: 2008Q4

REPORT INFORMATION
  Report Type: 
  Country: None (occurrence: None)
  Receive Date: 20081209
  Receipt Date: 20081201
  Transmission Date: 20090506
  Serious: Yes (Hospitalization, Other)
  Sender: FDA-Public Use
  Company Number: US-ELI_LILLY_AND_COMPANY-US200811004931

PATIENT
  Age: 45 Year
  Sex: Female

DRUGS (4)
  1. BYETTA [Suspect]
     Indication: TYPE 2 DIABETES MELLITUS
     Dates: start: 20070101, end: 20081001
  2. METFORMIN HCL [Concomitant]
     Indication: TYPE 2 DIABETES MELLITUS
  3. ACTOS [Concomitant]
     Indication: TYPE 2 DIABETES MELLITUS
  4. LANTUS [Concomitant]
     Indication: TYPE 2 DIABETES MELLITUS

REACTIONS (9)
  - BLOOD BICARBONATE DECREASED [None]
  - BLOOD CALCIUM DECREASED [None]
  - BLOOD TRIGLYCERIDES INCREASED [None]
  - CYSTITIS [None]
  - HAEMATURIA [None]
  - HYPERGLYCAEMIA [None]
  - KETOACIDOSIS [None]
  - PANCREATITIS HAEMORRHAGIC [None]
  - RENAL FAILURE ACUTE [None]
